FAERS Safety Report 7170349-0 (Version None)
Quarter: 2010Q4

REPORT INFORMATION
  Report Type: 
  Country: None (occurrence: None)
  Receive Date: 20101217
  Receipt Date: 20101208
  Transmission Date: 20110411
  Serious: Yes (Other)
  Sender: FDA-Public Use
  Company Number: DE-ROCHE-746174

PATIENT
  Sex: Male
  Weight: 85 kg

DRUGS (6)
  1. AVASTIN [Suspect]
     Route: 042
     Dates: start: 20100602, end: 20100908
  2. OXALIPLATIN [Concomitant]
     Route: 042
     Dates: start: 20100602, end: 20101006
  3. FLUOROURACIL [Concomitant]
     Route: 042
     Dates: start: 20100602
  4. FOLINIC ACID [Concomitant]
     Route: 042
     Dates: start: 20100602
  5. PANTOPRAZOLE [Concomitant]
     Indication: PROPHYLAXIS
     Route: 048
  6. CODEINE SUL TAB [Concomitant]
     Indication: COUGH
     Dosage: DAILY
     Route: 048

REACTIONS (3)
  - BRADYCARDIA [None]
  - CIRCULATORY COLLAPSE [None]
  - VISUAL IMPAIRMENT [None]
